FAERS Safety Report 4427075-8 (Version None)
Quarter: 2004Q3

REPORT INFORMATION
  Report Type: 
  Country: None (occurrence: None)
  Receive Date: 20040816
  Receipt Date: 20030407
  Transmission Date: 20050211
  Serious: Yes (Death, Hospitalization, Other)
  Sender: FDA-Public Use
  Company Number: US-MERCK-0304USA00825

PATIENT
  Age: 89 Year
  Sex: Female
  Weight: 52 kg

DRUGS (6)
  1. PERCOCET [Concomitant]
     Route: 065
  2. FOSAMAX [Concomitant]
     Route: 065
  3. DILTIAZEM HYDROCHLORIDE [Concomitant]
     Route: 065
  4. ZESTRIL [Concomitant]
     Route: 065
  5. VIOXX [Suspect]
     Indication: OSTEOARTHRITIS
     Route: 048
     Dates: start: 20010601
  6. VIOXX [Suspect]
     Indication: PAIN
     Route: 048
     Dates: start: 20010601

REACTIONS (18)
  - ANXIETY [None]
  - AORTIC ANEURYSM [None]
  - ARTHRALGIA [None]
  - ASTHMA [None]
  - ATRIAL FIBRILLATION [None]
  - BRADYCARDIA [None]
  - BRONCHITIS [None]
  - BRONCHOSPASM [None]
  - DEATH [None]
  - DISORIENTATION [None]
  - HYPOTENSION [None]
  - INTERSTITIAL LUNG DISEASE [None]
  - LABILE HYPERTENSION [None]
  - MYOCARDIAL INFARCTION [None]
  - NEUROPATHY [None]
  - SPINAL COLUMN STENOSIS [None]
  - SPINAL COMPRESSION FRACTURE [None]
  - TRACHEAL OBSTRUCTION [None]
